FAERS Safety Report 23536405 (Version 1)
Quarter: 2024Q1

REPORT INFORMATION
  Report Type: Spontaneous
  Country: US (occurrence: US)
  Receive Date: 20240219
  Receipt Date: 20240219
  Transmission Date: 20240410
  Serious: Yes (Other)
  Sender: FDA-Public Use
  Company Number: US-AMGEN-USASP2024029072

PATIENT
  Age: 51 Year
  Sex: Female

DRUGS (4)
  1. RITUXIMAB [Suspect]
     Active Substance: RITUXIMAB
     Indication: Ocular lymphoma
     Dosage: UNK, FIRST CYCLE
  2. RITUXIMAB [Suspect]
     Active Substance: RITUXIMAB
     Dosage: UNK, SECOND CYCLE
  3. METHOTREXATE [Concomitant]
     Active Substance: METHOTREXATE
     Indication: Ocular lymphoma
     Dosage: UNK, FIRST CYCLE
  4. METHOTREXATE [Concomitant]
     Active Substance: METHOTREXATE
     Dosage: UNK, SECOND CYCLE

REACTIONS (5)
  - Retinal occlusive vasculitis [Unknown]
  - Eye inflammation [Recovering/Resolving]
  - Granuloma [Recovering/Resolving]
  - Cataract subcapsular [Recovered/Resolved]
  - Off label use [Unknown]
